FAERS Safety Report 9463833 (Version 1)
Quarter: 2013Q3

REPORT INFORMATION
  Report Type: Spontaneous
  Country: US (occurrence: US)
  Receive Date: 20130819
  Receipt Date: 20130819
  Transmission Date: 20140515
  Serious: Yes (Other)
  Sender: FDA-Public Use
  Company Number: US-PFIZER INC-2013236769

PATIENT
  Age: 52 Year
  Sex: Male

DRUGS (2)
  1. FENTANYL [Suspect]
     Dosage: UNK
  2. ZOLOFT [Suspect]
     Dosage: UNK

REACTIONS (6)
  - Muscular dystrophy [Unknown]
  - Cold sweat [Unknown]
  - Trismus [Unknown]
  - Renal disorder [Unknown]
  - Tremor [Unknown]
  - Drug administration error [Unknown]
